FAERS Safety Report 13049930 (Version 1)
Quarter: 2016Q4

REPORT INFORMATION
  Report Type: Spontaneous
  Country: US (occurrence: US)
  Receive Date: 20161221
  Receipt Date: 20161221
  Transmission Date: 20170207
  Serious: Yes (Other)
  Sender: FDA-Public Use
  Company Number: US-AUROBINDO-AUR-APL-2016-15378

PATIENT
  Age: 67 Year
  Sex: Female

DRUGS (3)
  1. LIDOCAINE. [Concomitant]
     Active Substance: LIDOCAINE
     Indication: PRODUCT USED FOR UNKNOWN INDICATION
     Dosage: UNK, INSTILLED IN THE ANTERIOR CHAMBER
     Route: 065
  2. SODIUM HYALURONATE [Concomitant]
     Active Substance: HYALURONATE SODIUM
     Indication: PRODUCT USED FOR UNKNOWN INDICATION
     Dosage: UNK, INSTILLED IN THE ANTERIOR CHAMBER
     Route: 065
  3. VANCOMYCIN [Suspect]
     Active Substance: VANCOMYCIN
     Indication: PRODUCT USED FOR UNKNOWN INDICATION
     Dosage: UNK, INSTILLED IN THE ANTERIOR CHAMBER
     Route: 065

REACTIONS (3)
  - Glaucoma [Recovering/Resolving]
  - Vitreous haemorrhage [Recovering/Resolving]
  - Retinal haemorrhage [Recovering/Resolving]
